FAERS Safety Report 18272980 (Version 1)
Quarter: 2020Q3

REPORT INFORMATION
  Report Type: Spontaneous
  Country: None (occurrence: US)
  Receive Date: 20200916
  Receipt Date: 20200916
  Transmission Date: 20201103
  Serious: No
  Sender: FDA-Public Use
  Company Number: US-BIODELIVERY SCIENCES INTERNATIONAL-2020BDSI0475

PATIENT
  Age: 72 Year
  Sex: Female
  Weight: 65.83 kg

DRUGS (2)
  1. BUPRENORPHINE. [Suspect]
     Active Substance: BUPRENORPHINE
     Indication: PAIN
     Route: 002
     Dates: start: 2018
  2. LORATADINE. [Concomitant]
     Active Substance: LORATADINE
     Indication: PAIN
     Route: 048

REACTIONS (8)
  - Drug screen negative [Not Recovered/Not Resolved]
  - Wrong technique in product usage process [Unknown]
  - Product solubility abnormal [Unknown]
  - Product communication issue [Unknown]
  - Product taste abnormal [Unknown]
  - Product physical consistency issue [Unknown]
  - Incorrect route of product administration [Recovered/Resolved]
  - Oropharyngeal discomfort [Recovered/Resolved]

NARRATIVE: CASE EVENT DATE: 202004
